FAERS Safety Report 13335889 (Version 2)
Quarter: 2017Q1

REPORT INFORMATION
  Report Type: Spontaneous
  Country: KR (occurrence: KR)
  Receive Date: 20170314
  Receipt Date: 20170317
  Transmission Date: 20170428
  Serious: Yes (Hospitalization, Other)
  Sender: FDA-Public Use
  Company Number: KR-009507513-1703KOR005185

PATIENT
  Age: 60 Year
  Sex: Female
  Weight: 55.9 kg

DRUGS (13)
  1. SANCUSO [Concomitant]
     Active Substance: GRANISETRON
     Indication: PROPHYLAXIS OF NAUSEA AND VOMITING
     Dosage: 34.3 MG, ONCE (FORMULATION AND ROUTE: PATCH; STRENGTH: 80.2X66.6 MM2)
     Dates: start: 20161026, end: 20161026
  2. EMEND (FOSAPREPITANT DIMEGLUMINE) [Suspect]
     Active Substance: FOSAPREPITANT DIMEGLUMINE
     Indication: PROPHYLAXIS OF NAUSEA AND VOMITING
     Dosage: 150 MG, ONCE
     Route: 042
     Dates: start: 20161027, end: 20161027
  3. EMEND (FOSAPREPITANT DIMEGLUMINE) [Suspect]
     Active Substance: FOSAPREPITANT DIMEGLUMINE
     Dosage: 150 MG, ONCE
     Route: 042
     Dates: start: 20170102, end: 20170102
  4. DEXAMETHASONE YUHAN [Concomitant]
     Indication: PROPHYLAXIS OF NAUSEA AND VOMITING
     Dosage: 4 MG, BID
     Route: 048
     Dates: start: 20161027, end: 20161027
  5. NASEA [Concomitant]
     Active Substance: RAMOSETRON HYDROCHLORIDE
     Indication: PROPHYLAXIS OF NAUSEA AND VOMITING
     Dosage: 0.3 MG, ONCE
     Route: 042
     Dates: start: 20161027, end: 20161027
  6. POLMACOXIB [Concomitant]
     Indication: CANCER PAIN
     Dosage: 2 MG (1 TABLET, ALSO REPORTED AS CAPSULE), BID
     Route: 048
     Dates: start: 20161027
  7. ENTELON [Concomitant]
     Indication: PROPHYLAXIS
     Dosage: 150 MG (1 TABLET), BID
     Route: 048
     Dates: start: 20161013
  8. EMEND (FOSAPREPITANT DIMEGLUMINE) [Suspect]
     Active Substance: FOSAPREPITANT DIMEGLUMINE
     Dosage: 150 MG, ONCE
     Route: 042
     Dates: start: 20161121, end: 20161121
  9. ILDONG ADRIAMYCIN RDF [Concomitant]
     Indication: BREAST CANCER
     Dosage: 92 MG, ONCE (CYCLE 1)
     Route: 042
     Dates: start: 20161027, end: 20161027
  10. NEUTROGIN [Concomitant]
     Active Substance: LENOGRASTIM
     Indication: ANAEMIA PROPHYLAXIS
     Dosage: 250 MICROGRAM, ONCE
     Route: 058
     Dates: start: 20161031, end: 20161031
  11. CARDIOXANE [Concomitant]
     Active Substance: DEXRAZOXANE HYDROCHLORIDE
     Indication: PROPHYLAXIS
     Dosage: 1 G, ONCE
     Route: 042
     Dates: start: 20161027, end: 20161027
  12. EMEND (FOSAPREPITANT DIMEGLUMINE) [Suspect]
     Active Substance: FOSAPREPITANT DIMEGLUMINE
     Dosage: 150 MG, ONCE
     Route: 042
     Dates: start: 20161212, end: 20161212
  13. ENDOXAN [Concomitant]
     Active Substance: CYCLOPHOSPHAMIDE
     Indication: BREAST CANCER
     Dosage: 920 MG, ONCE (CYCLE 1)
     Route: 042
     Dates: start: 20161027, end: 20161027

REACTIONS (1)
  - Febrile neutropenia [Recovered/Resolved]

NARRATIVE: CASE EVENT DATE: 20161106
